FAERS Safety Report 14449308 (Version 1)
Quarter: 2018Q1

REPORT INFORMATION
  Report Type: Spontaneous
  Country: HR (occurrence: HR)
  Receive Date: 20180127
  Receipt Date: 20180127
  Transmission Date: 20180509
  Serious: Yes (Death, Other)
  Sender: FDA-Public Use
  Company Number: HR-AMGEN-HRVSP2018010831

PATIENT
  Sex: Female

DRUGS (1)
  1. VECTIBIX [Suspect]
     Active Substance: PANITUMUMAB
     Indication: COLORECTAL CANCER METASTATIC
     Dosage: 500 MG, EACH 2 WEEKS
     Route: 042
     Dates: start: 20171110, end: 20171229

REACTIONS (1)
  - Malignant neoplasm progression [Fatal]
